FAERS Safety Report 8625059-7 (Version None)
Quarter: 2012Q3

REPORT INFORMATION
  Report Type: 
  Country: None (occurrence: None)
  Receive Date: 20120827
  Receipt Date: 20120822
  Transmission Date: 20120928
  Serious: Yes (Other)
  Sender: FDA-Public Use
  Company Number: US-PFIZER INC-2012206904

PATIENT
  Age: 46 Year
  Sex: Female
  Weight: 72.562 kg

DRUGS (5)
  1. LYRICA [Suspect]
     Dosage: 100 MG, 3X/DAY
  2. FLUDROCORTISONE [Concomitant]
     Indication: BLOOD PRESSURE DECREASED
     Dosage: 0.1 MG HALF A TABLET DAILY
     Dates: start: 20100101
  3. LYRICA [Suspect]
     Dosage: 75 MG, 3X/DAY
  4. LYRICA [Suspect]
     Indication: NERVE INJURY
     Dosage: 50 MG, 3X/DAY
     Dates: start: 20071101
  5. LEVOXYL [Concomitant]
     Indication: THYROID DISORDER
     Dosage: 0.075 MG, DAILY

REACTIONS (6)
  - CARDIAC DISORDER [None]
  - GAIT DISTURBANCE [None]
  - BURNING SENSATION [None]
  - NERVE COMPRESSION [None]
  - INTERVERTEBRAL DISC INJURY [None]
  - PAIN [None]
